FAERS Safety Report 18936985 (Version 6)
Quarter: 2021Q4

REPORT INFORMATION
  Report Type: Other
  Country: CA (occurrence: CA)
  Receive Date: 20210225
  Receipt Date: 20211217
  Transmission Date: 20220304
  Serious: Yes (Hospitalization, Other)
  Sender: FDA-Public Use
  Company Number: CA-GLENMARK PHARMACEUTICALS-2021GMK052300

PATIENT

DRUGS (140)
  1. GABAPENTIN [Suspect]
     Active Substance: GABAPENTIN
     Indication: Pain management
     Dosage: 600 MILLIGRAM, TID (1 EVERY 8 HOURS)
     Route: 048
  2. GABAPENTIN [Suspect]
     Active Substance: GABAPENTIN
     Indication: Back pain
  3. GABAPENTIN [Suspect]
     Active Substance: GABAPENTIN
     Indication: Child abuse
  4. ARIPIPRAZOLE [Suspect]
     Active Substance: ARIPIPRAZOLE
     Indication: Child abuse
     Dosage: 2 MILLIGRAM, TID
     Route: 048
  5. ARIPIPRAZOLE [Suspect]
     Active Substance: ARIPIPRAZOLE
     Dosage: 2 MILLIGRAM, OD (1 EVERY 1 DAYS)
     Route: 048
  6. ARIPIPRAZOLE [Suspect]
     Active Substance: ARIPIPRAZOLE
     Dosage: UNK
     Route: 065
  7. VITAMIN C [Suspect]
     Active Substance: ASCORBIC ACID
     Indication: Child abuse
     Dosage: 1500 MILLIGRAM, OD (1 EVERY 1 DAYS)
     Route: 048
  8. VITAMIN C [Suspect]
     Active Substance: ASCORBIC ACID
     Indication: Product used for unknown indication
  9. BACLOFEN [Suspect]
     Active Substance: BACLOFEN
     Indication: Child abuse
     Dosage: 20 MILLIGRAM, TID (EVERY 8 HOURS)
     Route: 048
  10. BISACODYL [Suspect]
     Active Substance: BISACODYL
     Indication: Child abuse
     Dosage: 5 MILLIGRAM, OD
     Route: 048
  11. BISACODYL [Suspect]
     Active Substance: BISACODYL
     Dosage: 5 MILLIGRAM, PRN
     Route: 048
  12. CELECOXIB [Suspect]
     Active Substance: CELECOXIB
     Indication: Pain management
     Dosage: 100 MILLIGRAM, BID (FORMULATION: CAPSULE)
     Route: 048
  13. CELECOXIB [Suspect]
     Active Substance: CELECOXIB
     Indication: Back pain
     Dosage: 100 MILLIGRAM, BID (FORMULATION: UNKNOWN)
     Route: 048
  14. CELECOXIB [Suspect]
     Active Substance: CELECOXIB
     Indication: Child abuse
     Dosage: 100.0 MILLIGRAM, 1 EVERY .5 DAYS (FORMULATION: CAPSULES)
     Route: 065
  15. CELECOXIB [Suspect]
     Active Substance: CELECOXIB
     Dosage: UNK, (FORMULATION: CAPSULE, HARD)
     Route: 065
  16. CLOBAZAM [Suspect]
     Active Substance: CLOBAZAM
     Indication: Child abuse
     Dosage: 20 MILLIGRAM, BID
     Route: 048
  17. CLOBAZAM [Suspect]
     Active Substance: CLOBAZAM
     Indication: Back pain
     Dosage: UNK
     Route: 065
  18. CLOBAZAM [Suspect]
     Active Substance: CLOBAZAM
     Indication: Pruritus
  19. CLOBAZAM [Suspect]
     Active Substance: CLOBAZAM
     Indication: Pain management
  20. CLOBAZAM [Suspect]
     Active Substance: CLOBAZAM
     Indication: Seizure
  21. CLONIDINE [Suspect]
     Active Substance: CLONIDINE
     Indication: Child abuse
     Dosage: 0.1 MILLIGRAM, OD
     Route: 048
  22. CLONIDINE [Suspect]
     Active Substance: CLONIDINE
     Dosage: UNK
     Route: 048
  23. CLONIDINE [Suspect]
     Active Substance: CLONIDINE
     Dosage: 0.5 MILLIGRAM, OD
     Route: 048
  24. CLONIDINE [Suspect]
     Active Substance: CLONIDINE
     Dosage: UNK
     Route: 065
  25. CLONIDINE [Suspect]
     Active Substance: CLONIDINE
     Dosage: 0.5 MILLIGRAM, OD
     Route: 048
  26. DIMENHYDRINATE [Suspect]
     Active Substance: DIMENHYDRINATE
     Indication: Constipation
     Dosage: 25 MILLIGRAM, OD
     Route: 048
  27. DIMENHYDRINATE [Suspect]
     Active Substance: DIMENHYDRINATE
     Indication: Child abuse
     Dosage: 25 MILLIGRAM, PRN
     Route: 065
  28. DIMENHYDRINATE [Suspect]
     Active Substance: DIMENHYDRINATE
     Dosage: UNK
     Route: 065
  29. DIPHENHYDRAMINE [Suspect]
     Active Substance: DIPHENHYDRAMINE
     Indication: Pruritus
     Dosage: 12.5 MILLIGRAM, QID (1 EVERY 6 HOURS)
     Route: 048
  30. DIPHENHYDRAMINE [Suspect]
     Active Substance: DIPHENHYDRAMINE
     Indication: Child abuse
  31. HYDROXYCHLOROQUINE SULFATE [Suspect]
     Active Substance: HYDROXYCHLOROQUINE SULFATE
     Indication: Product used for unknown indication
     Dosage: 400 MILLIGRAM, OD
     Route: 048
  32. GABAPENTIN [Suspect]
     Active Substance: GABAPENTIN
     Indication: Pain management
     Dosage: UNK
     Route: 065
  33. GABAPENTIN [Suspect]
     Active Substance: GABAPENTIN
     Indication: Child abuse
  34. DOCONEXENT\ICOSAPENT [Suspect]
     Active Substance: DOCONEXENT\ICOSAPENT
     Indication: Product used for unknown indication
     Dosage: UNK
     Route: 048
  35. ROBAXACET [Suspect]
     Active Substance: ACETAMINOPHEN\METHOCARBAMOL
     Indication: Back pain
     Dosage: 900 MILLIGRAM, OD
     Route: 048
  36. ACETAMINOPHEN\METHOCARBAMOL [Suspect]
     Active Substance: ACETAMINOPHEN\METHOCARBAMOL
     Indication: Child abuse
     Dosage: UNK, BID
     Route: 048
  37. ACETAMINOPHEN\METHOCARBAMOL [Suspect]
     Active Substance: ACETAMINOPHEN\METHOCARBAMOL
     Indication: Back pain
     Dosage: UNK, OD (1 EVERY 1 DAYS)
     Route: 048
  38. DOCONEXENT [Suspect]
     Active Substance: DOCONEXENT
     Indication: Product used for unknown indication
     Dosage: UNK
     Route: 065
  39. ACETAMINOPHEN\METHOCARBAMOL [Suspect]
     Active Substance: ACETAMINOPHEN\METHOCARBAMOL
     Indication: Product used for unknown indication
     Dosage: 400 MILLIGRAM, BID
     Route: 065
  40. DULCOLAX (BISACODYL) [Suspect]
     Active Substance: BISACODYL
     Indication: Child abuse
     Dosage: 0.5 MILLIGRAM, OD
     Route: 048
  41. DULCOLAX (BISACODYL) [Suspect]
     Active Substance: BISACODYL
     Dosage: 5 MILLIGRAM, OD (1 EVERY 1 DAYS)
     Route: 048
  42. DULCOLAX (BISACODYL) [Suspect]
     Active Substance: BISACODYL
     Dosage: 5 MILLIGRAM
     Route: 048
  43. DULCOLAX (BISACODYL) [Suspect]
     Active Substance: BISACODYL
     Dosage: UNK
     Route: 065
  44. CHOLECALCIFEROL [Suspect]
     Active Substance: CHOLECALCIFEROL
     Indication: Product used for unknown indication
     Dosage: 2000 INTERNATIONAL UNIT, OD
     Route: 048
  45. FISH OIL [Suspect]
     Active Substance: FISH OIL
     Indication: Child abuse
     Dosage: 200 MILLIGRAM, OD
     Route: 048
  46. FISH OIL [Suspect]
     Active Substance: FISH OIL
     Dosage: UNK
     Route: 048
  47. FLUOXETINE [Suspect]
     Active Substance: FLUOXETINE HYDROCHLORIDE
     Indication: Child abuse
     Dosage: 20 MILLIGRAM, OD (1 EVERY 1 DAYS)
     Route: 048
  48. FLUTICASONE [Suspect]
     Active Substance: FLUTICASONE
     Indication: Child abuse
     Dosage: 250 MICROGRAM, OD (1 EVERY 1 DAYS)
  49. FLUTICASONE [Suspect]
     Active Substance: FLUTICASONE
     Dosage: 2 DOSAGE FORM, OD (1 EVERY 1 DAYS)
  50. HYDROXYCHLOROQUINE [Suspect]
     Active Substance: HYDROXYCHLOROQUINE
     Indication: Child abuse
     Dosage: 400 MILLIGRAM, OD (1 EVERY 1 DAYS)
     Route: 048
  51. HYDROXYCHLOROQUINE [Suspect]
     Active Substance: HYDROXYCHLOROQUINE
     Dosage: 400 MILLIGRAM, OD
     Route: 048
  52. HYDROMORPHONE [Suspect]
     Active Substance: HYDROMORPHONE
     Indication: Pain management
     Dosage: UNK
     Route: 065
  53. HYDROMORPHONE [Suspect]
     Active Substance: HYDROMORPHONE
     Indication: Child abuse
  54. HYDROMORPHONE [Suspect]
     Active Substance: HYDROMORPHONE
     Indication: Back pain
  55. KETOROLAC TROMETHAMINE [Suspect]
     Active Substance: KETOROLAC TROMETHAMINE
     Indication: Pain
     Dosage: 20 MILLIGRAM, QID (1 EVERY 6 HOURS)
     Route: 048
  56. KETOROLAC TROMETHAMINE [Suspect]
     Active Substance: KETOROLAC TROMETHAMINE
     Indication: Child abuse
  57. LEUPROLIDE ACETATE [Suspect]
     Active Substance: LEUPROLIDE ACETATE
     Indication: Product used for unknown indication
     Dosage: 7.5 MILLIGRAM, 1 EVERY 1 MONTH
     Route: 030
  58. LORAZEPAM [Suspect]
     Active Substance: LORAZEPAM
     Indication: Seizure
     Dosage: 0.5 MILLIGRAM, PRN
     Route: 060
  59. LORAZEPAM [Suspect]
     Active Substance: LORAZEPAM
     Indication: Pain management
     Dosage: 2 MILLIGRAM, PRN
     Route: 060
  60. LORAZEPAM [Suspect]
     Active Substance: LORAZEPAM
     Indication: Muscle spasms
     Dosage: UNK, PRN
     Route: 060
  61. LORAZEPAM [Suspect]
     Active Substance: LORAZEPAM
     Indication: Child abuse
     Dosage: 0.5 MILLIGRAM, UNK
     Route: 060
  62. LORAZEPAM [Suspect]
     Active Substance: LORAZEPAM
     Indication: Back pain
     Dosage: 2 MILLIGRAM, UNK
     Route: 060
  63. LORAZEPAM [Suspect]
     Active Substance: LORAZEPAM
     Dosage: UNK
     Route: 065
  64. LORAZEPAM [Suspect]
     Active Substance: LORAZEPAM
     Dosage: UNK
     Route: 065
  65. LORAZEPAM [Suspect]
     Active Substance: LORAZEPAM
     Dosage: 2 MILLIGRAM, OD (1 EVERY 1 DAYS)
     Route: 060
  66. LORAZEPAM [Suspect]
     Active Substance: LORAZEPAM
     Dosage: 0.5 MILLIGRAM
     Route: 060
  67. LORAZEPAM [Suspect]
     Active Substance: LORAZEPAM
     Dosage: UNK
     Route: 060
  68. LORAZEPAM [Suspect]
     Active Substance: LORAZEPAM
     Dosage: 0.5 MILLIGRAM, OD (1 EVERY 1 DAYS)
     Route: 060
  69. MELATONIN [Suspect]
     Active Substance: MELATONIN
     Indication: Sleep deficit
     Dosage: 10 MILLIGRAM, OD (1 EVERY 1 DAYS)
     Route: 048
  70. MELATONIN [Suspect]
     Active Substance: MELATONIN
     Indication: Child abuse
     Dosage: UNK
     Route: 065
  71. MELATONIN [Suspect]
     Active Substance: MELATONIN
     Indication: Sleep disorder
  72. METHADONE [Suspect]
     Active Substance: METHADONE HYDROCHLORIDE
     Indication: Back pain
     Dosage: 2 MILLIGRAM, TID (1 EVERY 8 HOURS)
     Route: 048
  73. METHADONE [Suspect]
     Active Substance: METHADONE HYDROCHLORIDE
     Indication: Child abuse
  74. METHOCARBAMOL [Suspect]
     Active Substance: METHOCARBAMOL
     Indication: Product used for unknown indication
     Dosage: UNK
     Route: 065
  75. MONTELUKAST [Suspect]
     Active Substance: MONTELUKAST SODIUM
     Indication: Product used for unknown indication
     Dosage: 10 MILLIGRAM, OD (1 EVERY 1 DAYS)
     Route: 048
  76. MONTELUKAST [Suspect]
     Active Substance: MONTELUKAST SODIUM
     Indication: Child abuse
     Dosage: 10 MILLIGRAM
     Route: 048
  77. MONTELUKAST [Suspect]
     Active Substance: MONTELUKAST SODIUM
     Indication: Pain
  78. PANTOPRAZOLE [Suspect]
     Active Substance: PANTOPRAZOLE
     Indication: Child abuse
     Dosage: 40 MILLIGRAM, OD (1 EVERY 1 DAYS)
     Route: 048
  79. PHENOBARBITAL [Suspect]
     Active Substance: PHENOBARBITAL
     Indication: Child abuse
     Dosage: 30 MILLIGRAM, BID (1 EVERY 12 HOURS)
     Route: 048
  80. PHENOBARBITAL [Suspect]
     Active Substance: PHENOBARBITAL
     Dosage: 30 MILLIGRAM, 1 EVERY 5 DAYS
     Route: 048
  81. RANITIDINE [Suspect]
     Active Substance: RANITIDINE
     Indication: Child abuse
     Dosage: 150 MILLIGRAM, OD
     Route: 048
  82. RANITIDINE [Suspect]
     Active Substance: RANITIDINE
     Dosage: 150 MILLIGRAM, UNK
     Route: 048
  83. ALBUTEROL [Suspect]
     Active Substance: ALBUTEROL
     Indication: Child abuse
     Dosage: 100 MICROGRAM, 1 EVERY 4 HOURS
  84. ALBUTEROL [Suspect]
     Active Substance: ALBUTEROL
     Dosage: UNK, PRN
     Route: 065
  85. ALBUTEROL [Suspect]
     Active Substance: ALBUTEROL
     Dosage: 2 DOSAGE FORM, 1 EVERY 4 HOURS
  86. ALBUTEROL [Suspect]
     Active Substance: ALBUTEROL
     Dosage: 100 MICROGRAM, 1 EVERY 4 HOURS
     Route: 065
  87. ALBUTEROL [Suspect]
     Active Substance: ALBUTEROL
     Dosage: 1 DOSAGE FORM, 1 EVERY 4 HOURS
  88. ALBUTEROL [Suspect]
     Active Substance: ALBUTEROL
     Dosage: UNK
  89. FISH OIL [Suspect]
     Active Substance: FISH OIL
     Indication: Child abuse
     Dosage: UNK
     Route: 048
  90. FLUTICASONE PROPIONATE [Suspect]
     Active Substance: FLUTICASONE PROPIONATE
     Indication: Child abuse
     Dosage: UNK
  91. FLUTICASONE PROPIONATE [Suspect]
     Active Substance: FLUTICASONE PROPIONATE
     Indication: Product used for unknown indication
     Dosage: 250 MICROGRAM, OD (1 EVERY 1 DAYS)
     Route: 065
  92. FLUTICASONE PROPIONATE [Suspect]
     Active Substance: FLUTICASONE PROPIONATE
     Dosage: UNK, OD (1 EVERY 1 DAYS)
  93. LEUPROLIDE ACETATE [Suspect]
     Active Substance: LEUPROLIDE ACETATE
     Indication: Child abuse
     Dosage: 7.5 MILLIGRAM, 1 EVERY 30 DAYS
     Route: 030
  94. LEUPROLIDE ACETATE [Suspect]
     Active Substance: LEUPROLIDE ACETATE
     Dosage: 7.5 MILLIGRAM, 1 EVERY 30 DAYS
     Route: 030
  95. LEUPROLIDE ACETATE [Suspect]
     Active Substance: LEUPROLIDE ACETATE
     Dosage: 7.5 MILLIGRAM, UNK
     Route: 030
  96. ACETAMINOPHEN\METHOCARBAMOL [Suspect]
     Active Substance: ACETAMINOPHEN\METHOCARBAMOL
     Indication: Child abuse
     Dosage: 400 MILLIGRAM, BID (1 EVEY 12 HOURS)
     Route: 048
  97. ACETAMINOPHEN\METHOCARBAMOL [Suspect]
     Active Substance: ACETAMINOPHEN\METHOCARBAMOL
     Indication: Back pain
     Dosage: UNK
     Route: 048
  98. ACETAMINOPHEN\METHOCARBAMOL [Suspect]
     Active Substance: ACETAMINOPHEN\METHOCARBAMOL
     Dosage: 900 MILLIGRAM, OD (1 EVERY 1 DAYS) (FORMULATION: UNKNOWN)
     Route: 065
  99. ALBUTEROL [Suspect]
     Active Substance: ALBUTEROL
     Indication: Child abuse
     Dosage: 1 DOSAGE FORM, 1 EVERY 4 HOURS
  100. POLYETHYLENE GLYCOL 3350 [Suspect]
     Active Substance: POLYETHYLENE GLYCOL 3350
     Indication: Child abuse
     Dosage: 30 MILLIGRAM, BID (1 EVERY 12 HOURS)
     Route: 048
  101. POLYETHYLENE GLYCOL 3350 [Suspect]
     Active Substance: POLYETHYLENE GLYCOL 3350
     Dosage: 30 MILLIGRAM, 1 EVERY .5 DAYS
     Route: 048
  102. FLUTICASONE FUROATE [Suspect]
     Active Substance: FLUTICASONE FUROATE
     Indication: Child abuse
     Dosage: 1 DOSAGE FORM, OD
  103. FLUTICASONE FUROATE [Suspect]
     Active Substance: FLUTICASONE FUROATE
     Dosage: 2 DOSAGE FORM
  104. FLUTICASONE FUROATE [Suspect]
     Active Substance: FLUTICASONE FUROATE
     Dosage: UNK
  105. FLUTICASONE FUROATE [Suspect]
     Active Substance: FLUTICASONE FUROATE
     Dosage: UNK
  106. VITAMIN D3 [Suspect]
     Active Substance: CHOLECALCIFEROL
     Indication: Child abuse
     Dosage: UNK, OD
     Route: 048
  107. VITAMIN D3 [Suspect]
     Active Substance: CHOLECALCIFEROL
     Dosage: 2000 INTERNATIONAL UNIT, OD
     Route: 048
  108. VITAMIN D3 [Suspect]
     Active Substance: CHOLECALCIFEROL
     Dosage: UNK
     Route: 048
  109. LEUPROLIDE ACETATE [Suspect]
     Active Substance: LEUPROLIDE ACETATE
     Indication: Child abuse
     Dosage: 7.5 MILLIGRAM (1 EVERY 1 MONTH)
     Route: 030
  110. VITAMIN D3 [Suspect]
     Active Substance: CHOLECALCIFEROL
     Indication: Vitamin supplementation
     Dosage: 2000 INTERNATIONAL UNIT, OD
     Route: 048
  111. DIMENHYDRINATE [Suspect]
     Active Substance: DIMENHYDRINATE
     Indication: Child abuse
     Dosage: 12.5 MILLIGRAM, QID (4 EVERY 1 DAYS)
     Route: 048
  112. DIMENHYDRINATE [Suspect]
     Active Substance: DIMENHYDRINATE
     Indication: Constipation
     Dosage: 20.0 MILLIGRAM, QD (1 EVERY 1 DAYS)
     Route: 048
  113. DIMENHYDRINATE [Suspect]
     Active Substance: DIMENHYDRINATE
     Dosage: 25.0 MILLIGRAM, QD (1 EVERY 1 DAYS)
     Route: 048
  114. HYDROMORPHONE HYDROCHLORIDE [Suspect]
     Active Substance: HYDROMORPHONE HYDROCHLORIDE
     Indication: Back pain
     Dosage: UNK
     Route: 065
  115. MONTELUKAST SODIUM [Suspect]
     Active Substance: MONTELUKAST SODIUM
     Indication: Child abuse
     Dosage: 10 MILLIGRAM, OD
     Route: 048
  116. ASCORBIC ACID [Concomitant]
     Active Substance: ASCORBIC ACID
     Indication: Product used for unknown indication
     Dosage: 1500 MILLIGRAM, QD
     Route: 048
  117. ARIPIPRAZOLE [Concomitant]
     Active Substance: ARIPIPRAZOLE
     Indication: Product used for unknown indication
     Dosage: 2 MILLIGRAM, TID
     Route: 048
  118. BACLOFEN [Concomitant]
     Active Substance: BACLOFEN
     Indication: Product used for unknown indication
     Dosage: 20 MILLIGRAM, TID
     Route: 048
  119. BISACODYL [Concomitant]
     Active Substance: BISACODYL
     Indication: Product used for unknown indication
     Dosage: 5 MILLIGRAM, QD
     Route: 048
  120. CELECOXIB [Concomitant]
     Active Substance: CELECOXIB
     Indication: Product used for unknown indication
     Dosage: 100 MILLIGRAM, BID (1 EVERY 12 HOURS)
     Route: 048
  121. CHOLECALCIFEROL [Concomitant]
     Active Substance: CHOLECALCIFEROL
     Indication: Product used for unknown indication
     Dosage: UNK, QD
     Route: 048
  122. CLONIDINE [Concomitant]
     Active Substance: CLONIDINE
     Indication: Product used for unknown indication
     Dosage: 0.05 MILLIGRAM, QD
     Route: 048
  123. CLONIDINE [Concomitant]
     Active Substance: CLONIDINE
     Dosage: 0.1 MILLIGRAM, QD
     Route: 048
  124. DIMENHYDRINATE [Concomitant]
     Active Substance: DIMENHYDRINATE
     Indication: Constipation
     Dosage: 25 MILLIGRAM, QD
     Route: 048
  125. DIPHENHYDRAMINE [Concomitant]
     Active Substance: DIPHENHYDRAMINE
     Indication: Pruritus
     Dosage: 12.5 MILLIGRAM, QID
     Route: 048
  126. FLUOXETINE [Concomitant]
     Active Substance: FLUOXETINE HYDROCHLORIDE
     Indication: Product used for unknown indication
     Dosage: 20 MILLIGRAM, QD
     Route: 048
  127. FLUTICASONE [Concomitant]
     Active Substance: FLUTICASONE
     Indication: Product used for unknown indication
     Dosage: 250 MICROGRAM, QD
     Route: 045
  128. HYDROXYCHLOROQUINE [Concomitant]
     Active Substance: HYDROXYCHLOROQUINE
     Indication: Product used for unknown indication
     Dosage: 400 MILLIGRAM, QD
     Route: 048
  129. KETOROLAC [Concomitant]
     Active Substance: KETOROLAC TROMETHAMINE
     Indication: Pain
     Dosage: 20 MILLIGRAM, QID
     Route: 048
  130. LEUPROLIDE ACETATE [Concomitant]
     Active Substance: LEUPROLIDE ACETATE
     Indication: Product used for unknown indication
     Dosage: 7.5 MILLIGRAM, 1 EVERY 1 MONTH
     Route: 030
  131. POLYETHYLENE GLYCOL 3350 [Concomitant]
     Active Substance: POLYETHYLENE GLYCOL 3350
     Indication: Product used for unknown indication
     Dosage: 30 MILLIGRAM, BID
     Route: 048
  132. MELATONIN [Concomitant]
     Active Substance: MELATONIN
     Indication: Sleep disorder
     Dosage: 10 MILLIGRAM, OD
     Route: 048
  133. ACETAMINOPHEN\METHOCARBAMOL [Concomitant]
     Active Substance: ACETAMINOPHEN\METHOCARBAMOL
     Indication: Product used for unknown indication
     Dosage: UNK, BID
     Route: 048
  134. MONTELUKAST [Concomitant]
     Active Substance: MONTELUKAST SODIUM
     Indication: Product used for unknown indication
     Dosage: 10 MILLIGRAM, QD
     Route: 048
  135. DOCONEXENT\ICOSAPENT [Concomitant]
     Active Substance: DOCONEXENT\ICOSAPENT
     Indication: Product used for unknown indication
     Dosage: UNK, QD
     Route: 048
  136. PANTOPRAZOLE [Concomitant]
     Active Substance: PANTOPRAZOLE
     Indication: Product used for unknown indication
     Dosage: 40 MILLIGRAM, QD
     Route: 048
  137. PHENOBARBITAL [Concomitant]
     Active Substance: PHENOBARBITAL
     Indication: Product used for unknown indication
     Dosage: 30 MILLIGRAM, BID
     Route: 048
  138. PHENOBARBITAL [Concomitant]
     Active Substance: PHENOBARBITAL
     Dosage: 30 MILLIGRAM, 1 EVERY .5 DAYS
     Route: 048
  139. RANITIDINE [Concomitant]
     Active Substance: RANITIDINE
     Indication: Product used for unknown indication
     Dosage: 150 MILLIGRAM, QD
     Route: 048
  140. ALBUTEROL [Concomitant]
     Active Substance: ALBUTEROL
     Indication: Product used for unknown indication
     Dosage: 100 MICROGRAM, 6 EVERY ONE DAY
     Route: 045

REACTIONS (9)
  - Victim of child abuse [Recovered/Resolved]
  - Intentional product misuse [Unknown]
  - Child abuse [Unknown]
  - Product prescribing error [Unknown]
  - Respiratory depression [Recovered/Resolved]
  - Drug abuse [Recovered/Resolved]
  - Drug dependence [Recovered/Resolved]
  - Drug ineffective [Unknown]
  - Product use in unapproved indication [Unknown]
